FAERS Safety Report 25069459 (Version 2)
Quarter: 2025Q1

REPORT INFORMATION
  Report Type: Spontaneous
  Country: US (occurrence: US)
  Receive Date: 20250312
  Receipt Date: 20250315
  Transmission Date: 20250408
  Serious: No
  Sender: ELI LILLY AND COMPANY
  Company Number: US-ELI_LILLY_AND_COMPANY-US202503005677

PATIENT
  Age: 63 Year
  Sex: Female

DRUGS (8)
  1. MOUNJARO [Suspect]
     Active Substance: TIRZEPATIDE
     Indication: Glucose tolerance impaired
     Route: 058
     Dates: start: 202307
  2. MOUNJARO [Suspect]
     Active Substance: TIRZEPATIDE
     Indication: Glucose tolerance impaired
     Route: 058
     Dates: start: 202307
  3. MOUNJARO [Suspect]
     Active Substance: TIRZEPATIDE
     Indication: Glucose tolerance impaired
     Route: 058
     Dates: start: 202307
  4. MOUNJARO [Suspect]
     Active Substance: TIRZEPATIDE
     Indication: Glucose tolerance impaired
     Route: 058
     Dates: start: 202307
  5. MOUNJARO [Suspect]
     Active Substance: TIRZEPATIDE
     Indication: Blood cholesterol increased
  6. MOUNJARO [Suspect]
     Active Substance: TIRZEPATIDE
     Indication: Blood cholesterol increased
  7. MOUNJARO [Suspect]
     Active Substance: TIRZEPATIDE
     Indication: Blood cholesterol increased
  8. MOUNJARO [Suspect]
     Active Substance: TIRZEPATIDE
     Indication: Blood cholesterol increased

REACTIONS (5)
  - Off label use [Unknown]
  - Injection site injury [Recovered/Resolved]
  - Injection site bruising [Not Recovered/Not Resolved]
  - Injection site mass [Recovered/Resolved]
  - Injection site pain [Unknown]

NARRATIVE: CASE EVENT DATE: 20240701
